FAERS Safety Report 15437895 (Version 1)
Quarter: 2018Q3

REPORT INFORMATION
  Report Type: Report from Study
  Country: US (occurrence: US)
  Receive Date: 20180927
  Receipt Date: 20180927
  Transmission Date: 20181010
  Serious: No
  Sender: FDA-Public Use
  Company Number: PHHY2018US108987

PATIENT
  Sex: Female

DRUGS (1)
  1. PROMACTA [Suspect]
     Active Substance: ELTROMBOPAG OLAMINE
     Indication: PLATELET COUNT DECREASED
     Route: 048

REACTIONS (1)
  - Drug ineffective [Unknown]
